FAERS Safety Report 4335048-9 (Version None)
Quarter: 2004Q2

REPORT INFORMATION
  Report Type: 
  Country: None (occurrence: None)
  Receive Date: 20040408
  Receipt Date: 20040322
  Transmission Date: 20050107
  Serious: Yes (Other)
  Sender: FDA-Public Use
  Company Number: AT-GLAXOSMITHKLINE-B0327709A

PATIENT
  Age: 84 Year
  Sex: Male
  Weight: 95 kg

DRUGS (6)
  1. AUGMENTIN [Suspect]
     Indication: URINARY TRACT INFECTION
     Dosage: 625MG TWICE PER DAY
     Route: 048
     Dates: start: 20040317, end: 20040318
  2. MEDIGOXIN [Concomitant]
  3. MIRTAZAPINE [Concomitant]
  4. PANTOPRAZOLE [Concomitant]
  5. RECORMON [Concomitant]
  6. BISOPROLOL FUMARATE [Concomitant]

REACTIONS (4)
  - LEUKOCYTOCLASTIC VASCULITIS [None]
  - LIVIDITY [None]
  - PURPURA [None]
  - RASH MACULAR [None]
